FAERS Safety Report 5205702-5 (Version None)
Quarter: 2007Q1

REPORT INFORMATION
  Report Type: 
  Country: None (occurrence: None)
  Receive Date: 20070105
  Receipt Date: 20070105
  Transmission Date: 20070707
  Serious: Yes (Hospitalization)
  Sender: FDA-Public Use
  Company Number: None

PATIENT
  Sex: Male
  Weight: 65 kg

DRUGS (9)
  1. MOXIFLOXACIN HCL [Suspect]
     Indication: PNEUMONIA
     Dosage: 400MG DAILY PO
     Route: 048
     Dates: start: 20061022, end: 20061029
  2. ALBUTEROL [Concomitant]
  3. PREDNISONE [Concomitant]
  4. SINGULAIR [Concomitant]
  5. AVELOX [Concomitant]
  6. PROTONIX [Concomitant]
  7. DIOVAN [Concomitant]
  8. SPIRIVA [Concomitant]
  9. TRAMADOL HCL [Concomitant]

REACTIONS (6)
  - BLOOD PRESSURE INCREASED [None]
  - CHILLS [None]
  - ECZEMA [None]
  - HEART RATE INCREASED [None]
  - SERUM SICKNESS [None]
  - SKIN EXFOLIATION [None]
